FAERS Safety Report 6016219-2 (Version None)
Quarter: 2008Q4

REPORT INFORMATION
  Report Type: 
  Country: None (occurrence: None)
  Receive Date: 20081218
  Receipt Date: 20081203
  Transmission Date: 20090506
  Serious: Yes (Other)
  Sender: FDA-Public Use
  Company Number: SPV1-2008-02665

PATIENT
  Age: 8 Year
  Sex: Male
  Weight: 28.1 kg

DRUGS (3)
  1. DAYTRANA [Suspect]
     Indication: ATTENTION DEFICIT/HYPERACTIVITY DISORDER
     Dosage: 20 MG, 1X/DAY:QD, TRANSDERMAL
     Route: 062
     Dates: start: 20081001
  2. SINGULAIR          /01262601/ (MONTELUKAST) [Concomitant]
  3. ALBUTEROL            /0013950/ (SALBUTAMOL) INHALATION GAS [Concomitant]

REACTIONS (6)
  - APPLICATION SITE BURN [None]
  - APPLICATION SITE DISCOLOURATION [None]
  - APPLICATION SITE DRYNESS [None]
  - APPLICATION SITE SCAB [None]
  - APPLICATION SITE SWELLING [None]
  - ASTHMA [None]
